FAERS Safety Report 24980386 (Version 2)
Quarter: 2025Q3

REPORT INFORMATION
  Report Type: Spontaneous
  Country: JP (occurrence: JP)
  Receive Date: 20250218
  Receipt Date: 20250915
  Transmission Date: 20251021
  Serious: Yes (Hospitalization)
  Sender: MERCK SHARP & DOHME LLC
  Company Number: JP-MSD-M2024-52826

PATIENT
  Age: 82 Year
  Sex: Female

DRUGS (3)
  1. KEYTRUDA [Suspect]
     Active Substance: PEMBROLIZUMAB
     Indication: Uterine cancer
     Route: 041
  2. LENVATINIB MESYLATE [Suspect]
     Active Substance: LENVATINIB MESYLATE
     Indication: Uterine cancer
     Route: 048
     Dates: start: 20241203, end: 202412
  3. LENVATINIB MESYLATE [Suspect]
     Active Substance: LENVATINIB MESYLATE
     Indication: Uterine cancer
     Route: 048

REACTIONS (5)
  - Hypercalcaemia [Recovered/Resolved]
  - Parathyroid disorder [Recovering/Resolving]
  - Adrenal disorder [Recovering/Resolving]
  - Dehydration [Unknown]
  - Hospitalisation [Unknown]

NARRATIVE: CASE EVENT DATE: 20241201
